FAERS Safety Report 15709995 (Version 2)
Quarter: 2018Q4

REPORT INFORMATION
  Report Type: Spontaneous
  Country: ES (occurrence: ES)
  Receive Date: 20181211
  Receipt Date: 20181218
  Transmission Date: 20190205
  Serious: Yes (Other)
  Sender: FDA-Public Use
  Company Number: PHHY2018ES165936

PATIENT
  Age: 59 Year
  Sex: Female

DRUGS (3)
  1. METHOTREXATE. [Suspect]
     Active Substance: METHOTREXATE
     Indication: RHEUMATOID ARTHRITIS
     Dosage: 15 MG, BIW
     Route: 065
  2. LEFLUNOMIDE. [Suspect]
     Active Substance: LEFLUNOMIDE
     Indication: RHEUMATOID ARTHRITIS
     Dosage: 10 MG, QD
     Route: 065
  3. ETANERCEPT [Suspect]
     Active Substance: ETANERCEPT
     Indication: RHEUMATOID ARTHRITIS
     Dosage: 50 MG, BIW
     Route: 065

REACTIONS (9)
  - Off label use [Unknown]
  - Postoperative wound infection [Unknown]
  - Swelling [Unknown]
  - Device related infection [Unknown]
  - Nervous system disorder [Unknown]
  - Skin lesion [Unknown]
  - Dyskinesia [Unknown]
  - Staphylococcal infection [Unknown]
  - Purulent discharge [Unknown]
